FAERS Safety Report 5922759-4 (Version None)
Quarter: 2008Q4

REPORT INFORMATION
  Report Type: 
  Country: None (occurrence: None)
  Receive Date: 20081014
  Receipt Date: 20081007
  Transmission Date: 20090506
  Serious: Yes (Death, Hospitalization)
  Sender: FDA-Public Use
  Company Number: 167937

PATIENT
  Age: 53 Year
  Sex: Female
  Weight: 54.4316 kg

DRUGS (3)
  1. AVONEX [Suspect]
     Indication: MULTIPLE SCLEROSIS
     Dosage: 30 UG;QW;IM
     Route: 030
     Dates: start: 20010101, end: 20021201
  2. CON MEDS [Concomitant]
  3. PREV MEDS [Concomitant]

REACTIONS (5)
  - BLOOD DISORDER [None]
  - DYSPHAGIA [None]
  - INFECTION [None]
  - PNEUMONIA [None]
  - URINARY TRACT INFECTION [None]
